FAERS Safety Report 8978190 (Version 1)
Quarter: 2012Q4

REPORT INFORMATION
  Report Type: 
  Country: IT (occurrence: IT)
  Receive Date: 20121221
  Receipt Date: 20121221
  Transmission Date: 20130627
  Serious: Yes (Hospitalization)
  Sender: FDA-Public Use
  Company Number: IT-PFIZER INC-2012321708

PATIENT
  Sex: Male

DRUGS (1)
  1. PIPERACILLIN/TAZOBACTAM STRAGEN [Suspect]

REACTIONS (3)
  - Eosinophilia [Unknown]
  - Hyperpyrexia [Recovering/Resolving]
  - Purpura [Recovering/Resolving]
